FAERS Safety Report 7650461-X (Version None)
Quarter: 2011Q3

REPORT INFORMATION
  Report Type: 
  Country: None (occurrence: None)
  Receive Date: 20110802
  Receipt Date: 20110714
  Transmission Date: 20111222
  Serious: Yes (Other)
  Sender: FDA-Public Use
  Company Number: US-GLAXOSMITHKLINE-A0885281A

PATIENT
  Age: 62 Year
  Sex: Female

DRUGS (3)
  1. GLIMEPIRIDE [Concomitant]
  2. AVANDIA [Suspect]
     Indication: PRODUCT USED FOR UNKNOWN INDICATION
     Route: 065
  3. LANTUS [Suspect]
     Indication: TYPE 2 DIABETES MELLITUS
     Dosage: 36UNIT PER DAY
     Route: 058
     Dates: start: 20060101

REACTIONS (7)
  - CATARACT [None]
  - CATARACT OPERATION [None]
  - VISUAL IMPAIRMENT [None]
  - FLUID RETENTION [None]
  - SWELLING [None]
  - VISUAL ACUITY REDUCED [None]
  - MYOCARDIAL INFARCTION [None]
